FAERS Safety Report 13133124 (Version 5)
Quarter: 2018Q2

REPORT INFORMATION
  Report Type: Report from Study
  Country: US (occurrence: US)
  Receive Date: 20170120
  Receipt Date: 20180419
  Transmission Date: 20180711
  Serious: Yes (Hospitalization, Other)
  Sender: FDA-Public Use
  Company Number: US-TEVA-726340USA

PATIENT
  Age: 69 Year
  Sex: Male
  Weight: 80 kg

DRUGS (31)
  1. ENZALUTAMIDE [Suspect]
     Active Substance: ENZALUTAMIDE
     Dosage: 160 MILLIGRAM DAILY;
     Route: 048
     Dates: start: 20160812, end: 20170330
  2. OXYCODONE ACETAMINOPHEN [Concomitant]
     Active Substance: ACETAMINOPHEN\OXYCODONE HYDROCHLORIDE
     Dosage: 5-325 MG
  3. PROBIOTIC [Concomitant]
     Active Substance: PROBIOTICS NOS
  4. LOTEMAX [Concomitant]
     Active Substance: LOTEPREDNOL ETABONATE
     Route: 065
  5. CALTRATE [Concomitant]
     Active Substance: CALCIUM CARBONATE
     Dates: start: 20160316
  6. TYLENOL [Concomitant]
     Active Substance: ACETAMINOPHEN
  7. COQ10 [Concomitant]
     Active Substance: UBIDECARENONE
     Route: 065
  8. PROCHLORPERAZINE MALEATE. [Concomitant]
     Active Substance: PROCHLORPERAZINE MALEATE
     Route: 065
  9. SILDENAFIL CITRATE. [Concomitant]
     Active Substance: SILDENAFIL CITRATE
     Route: 065
  10. MIRTAZAPINE. [Suspect]
     Active Substance: MIRTAZAPINE
     Indication: DEPRESSION
     Dosage: 15 MILLIGRAM DAILY;
     Route: 048
     Dates: start: 20150203, end: 201610
  11. VITAMIN D [Concomitant]
     Active Substance: CHOLECALCIFEROL
  12. LUMIGAN [Concomitant]
     Active Substance: BIMATOPROST
  13. METAMUCIL [Concomitant]
     Active Substance: PLANTAGO SEED
  14. ZOCOR [Concomitant]
     Active Substance: SIMVASTATIN
     Route: 065
  15. VIGAMOX [Concomitant]
     Active Substance: MOXIFLOXACIN HYDROCHLORIDE
     Route: 065
  16. MIRTAZAPINE. [Suspect]
     Active Substance: MIRTAZAPINE
     Route: 048
     Dates: start: 201703
  17. ONDANSETRON HCL [Concomitant]
     Active Substance: ONDANSETRON HYDROCHLORIDE
  18. MIRALAX [Concomitant]
     Active Substance: POLYETHYLENE GLYCOL 3350
  19. MIRTAZAPINE. [Suspect]
     Active Substance: MIRTAZAPINE
     Dosage: 15 MILLIGRAM DAILY;
     Route: 048
     Dates: start: 201703, end: 201703
  20. ENZALUTAMIDE [Suspect]
     Active Substance: ENZALUTAMIDE
     Dosage: 120 MILLIGRAM DAILY;
     Route: 048
     Dates: start: 20160224, end: 20160811
  21. PREDNISONE. [Concomitant]
     Active Substance: PREDNISONE
     Route: 065
  22. ZOLPIDEM TARTRATE. [Concomitant]
     Active Substance: ZOLPIDEM TARTRATE
     Route: 065
  23. ENZALUTAMIDE [Suspect]
     Active Substance: ENZALUTAMIDE
     Indication: PROSTATE CANCER
     Dosage: 160 MILLIGRAM DAILY;
     Route: 048
     Dates: start: 20150407, end: 20160215
  24. ALPHAGAN P [Concomitant]
     Active Substance: BRIMONIDINE TARTRATE
  25. ASPIRIN. [Concomitant]
     Active Substance: ASPIRIN
  26. GLUCOSAMINE COMPLEX [Concomitant]
     Active Substance: GLUCOSAMINE\GLUCOSAMINE SULFATE
  27. COLACE [Concomitant]
     Active Substance: DOCUSATE SODIUM
     Route: 065
  28. HISTRELIN ACETATE [Concomitant]
     Active Substance: HISTRELIN ACETATE
  29. PRILOSEC [Concomitant]
     Active Substance: OMEPRAZOLE MAGNESIUM
  30. IBUPROFEN. [Concomitant]
     Active Substance: IBUPROFEN
     Route: 065
     Dates: start: 20140715
  31. CALCIUM CARBONATE. [Concomitant]
     Active Substance: CALCIUM CARBONATE
     Dates: start: 20160316

REACTIONS (3)
  - Confusional state [Recovered/Resolved]
  - Transient global amnesia [Recovered/Resolved]
  - Fall [Recovered/Resolved]

NARRATIVE: CASE EVENT DATE: 20160907
